FAERS Safety Report 12170709 (Version 2)
Quarter: 2016Q2

REPORT INFORMATION
  Report Type: Spontaneous
  Country: US (occurrence: US)
  Receive Date: 20160311
  Receipt Date: 20160505
  Transmission Date: 20160815
  Serious: Yes (Other)
  Sender: FDA-Public Use
  Company Number: US-ROCHE-1724509

PATIENT
  Age: 33 Year
  Sex: Male
  Weight: 81.72 kg

DRUGS (5)
  1. RANITIDINE. [Concomitant]
     Active Substance: RANITIDINE
     Indication: URTICARIA
     Route: 048
     Dates: start: 20160310
  2. CLARITIN [Concomitant]
     Active Substance: LORATADINE
     Indication: URTICARIA
     Route: 048
  3. CLARITIN [Concomitant]
     Active Substance: LORATADINE
     Indication: RHINITIS ALLERGIC
  4. RANITIDINE. [Concomitant]
     Active Substance: RANITIDINE
     Indication: RHINITIS ALLERGIC
  5. XOLAIR [Suspect]
     Active Substance: OMALIZUMAB
     Indication: URTICARIA
     Route: 058
     Dates: start: 20150806

REACTIONS (2)
  - Erectile dysfunction [Unknown]
  - Erectile dysfunction [Unknown]

NARRATIVE: CASE EVENT DATE: 201512
